FAERS Safety Report 23363503 (Version 1)
Quarter: 2024Q1

REPORT INFORMATION
  Report Type: Spontaneous
  Country: CN (occurrence: CN)
  Receive Date: 20240103
  Receipt Date: 20240103
  Transmission Date: 20240410
  Serious: Yes (Life-Threatening, Other)
  Sender: FDA-Public Use
  Company Number: CN-ANIPHARMA-2023-CN-000679

PATIENT
  Age: 55 Year
  Sex: Female

DRUGS (4)
  1. CASODEX [Suspect]
     Active Substance: BICALUTAMIDE
     Indication: Breast cancer female
     Dosage: 50 MG DAILY
     Route: 048
     Dates: start: 20231118, end: 20231208
  2. ADO-TRASTUZUMAB EMTANSINE [Suspect]
     Active Substance: ADO-TRASTUZUMAB EMTANSINE
     Dosage: .16 G DAILY
     Route: 042
     Dates: start: 20231118, end: 20231118
  3. CISPLATIN [Suspect]
     Active Substance: CISPLATIN
     Dosage: 30 MG DAILY
     Route: 050
     Dates: start: 20231128, end: 20231128
  4. TUCATINIB [Suspect]
     Active Substance: TUCATINIB
     Dosage: 300 MG BID
     Route: 048
     Dates: start: 20231118, end: 20231208

REACTIONS (1)
  - Myelosuppression [Unknown]

NARRATIVE: CASE EVENT DATE: 20231213
